FAERS Safety Report 13703260 (Version 1)
Quarter: 2017Q2

REPORT INFORMATION
  Report Type: Spontaneous
  Country: FR (occurrence: FR)
  Receive Date: 20170629
  Receipt Date: 20170629
  Transmission Date: 20170830
  Serious: Yes (Other)
  Sender: FDA-Public Use
  Company Number: FR-BAYER-2017-123302

PATIENT
  Age: 51 Year
  Sex: Female
  Weight: 58 kg

DRUGS (1)
  1. MIRENA [Suspect]
     Active Substance: LEVONORGESTREL
     Dosage: 20 MCG/24HR, CONT
     Route: 015
     Dates: start: 20020101, end: 20130101

REACTIONS (4)
  - Breast cancer [Not Recovered/Not Resolved]
  - Hirsutism [Unknown]
  - Weight increased [Unknown]
  - Loss of libido [Unknown]

NARRATIVE: CASE EVENT DATE: 20150918
